FAERS Safety Report 4321843-9 (Version None)
Quarter: 2004Q1

REPORT INFORMATION
  Report Type: 
  Country: None (occurrence: None)
  Receive Date: 20040323
  Receipt Date: 20040203
  Transmission Date: 20041129
  Serious: Yes (Other)
  Sender: FDA-Public Use
  Company Number: 200410246JP

PATIENT
  Age: 68 Year
  Sex: Female

DRUGS (14)
  1. ARAVA [Suspect]
     Indication: RHEUMATOID ARTHRITIS
     Route: 048
     Dates: start: 20031117, end: 20040119
  2. PREDONINE [Concomitant]
     Indication: NEURITIS
     Route: 048
     Dates: start: 20031002, end: 20031016
  3. PREDONINE [Concomitant]
     Indication: RHEUMATOID ARTHRITIS
     Route: 048
     Dates: start: 20031002, end: 20031016
  4. SOLU-MEDROL [Concomitant]
     Indication: NEURITIS
     Route: 042
     Dates: start: 20030929, end: 20031001
  5. AZULFIDINE [Concomitant]
     Indication: RHEUMATOID ARTHRITIS
     Route: 048
     Dates: end: 20031116
  6. RIMATIL [Concomitant]
     Indication: RHEUMATOID ARTHRITIS
     Route: 048
     Dates: end: 20031116
  7. CLINORIL [Concomitant]
     Indication: RHEUMATOID ARTHRITIS
     Route: 048
  8. AMLODIN [Concomitant]
     Indication: HYPERTENSION
     Route: 048
  9. GLIMICRON [Concomitant]
     Indication: DIABETES MELLITUS
     Route: 048
  10. BASEN [Concomitant]
     Indication: DIABETES MELLITUS
     Route: 048
  11. ANTACID TAB [Concomitant]
     Indication: PROPHYLAXIS AGAINST GASTROINTESTINAL ULCER
     Route: 048
     Dates: start: 20031001
  12. LOCHOL [Concomitant]
     Indication: HYPERLIPIDAEMIA
     Route: 048
  13. MUCODYNE [Concomitant]
     Indication: BRONCHITIS CHRONIC
     Route: 048
  14. DIPYRIDAMOLE [Concomitant]
     Indication: BRONCHITIS CHRONIC
     Route: 048

REACTIONS (18)
  - ANAEMIA [None]
  - BLOOD ALBUMIN DECREASED [None]
  - BLOOD CHLORIDE DECREASED [None]
  - BLOOD LACTATE DEHYDROGENASE INCREASED [None]
  - BLOOD POTASSIUM DECREASED [None]
  - BLOOD SODIUM DECREASED [None]
  - BLOOD UREA INCREASED [None]
  - C-REACTIVE PROTEIN INCREASED [None]
  - COMPUTERISED TOMOGRAM ABNORMAL [None]
  - GENERALISED OEDEMA [None]
  - NEUTROPHIL PERCENTAGE INCREASED [None]
  - PAROTITIS [None]
  - PLEURAL EFFUSION [None]
  - PROTEIN TOTAL DECREASED [None]
  - PROTEIN URINE PRESENT [None]
  - PULMONARY OEDEMA [None]
  - SJOGREN'S SYNDROME [None]
  - WHITE BLOOD CELL COUNT INCREASED [None]
